FAERS Safety Report 23435334 (Version 1)
Quarter: 2024Q1

REPORT INFORMATION
  Report Type: Spontaneous
  Country: US (occurrence: US)
  Receive Date: 20240123
  Receipt Date: 20240123
  Transmission Date: 20240410
  Serious: Yes (Other)
  Sender: FDA-Public Use
  Company Number: US-PIRAMAL CRITICAL CARE LIMITED-2024-PPL-000056

PATIENT

DRUGS (2)
  1. SEVOFLURANE [Suspect]
     Active Substance: SEVOFLURANE
     Indication: Anaesthesia
     Dosage: UNK
  2. SUCCINYLCHOLINE [Suspect]
     Active Substance: SUCCINYLCHOLINE
     Indication: Anaesthesia
     Dosage: UNK

REACTIONS (7)
  - Hyperhidrosis [Recovering/Resolving]
  - Hyperthermia malignant [Recovering/Resolving]
  - Muscle rigidity [Recovering/Resolving]
  - Tachypnoea [Recovering/Resolving]
  - Tachycardia [Recovering/Resolving]
  - Hypercapnia [Recovering/Resolving]
  - Body temperature increased [Recovering/Resolving]
